FAERS Safety Report 7986372-X (Version None)
Quarter: 2011Q4

REPORT INFORMATION
  Report Type: 
  Country: None (occurrence: None)
  Receive Date: 20111216
  Receipt Date: 20110228
  Transmission Date: 20120403
  Serious: No
  Sender: FDA-Public Use
  Company Number: US-GLAXOSMITHKLINE-A0915873A

PATIENT
  Age: 60 Year
  Sex: Female

DRUGS (8)
  1. ZOCOR [Concomitant]
  2. MULTI-VITAMIN [Concomitant]
  3. PREVACID [Concomitant]
  4. CALCIUM [Concomitant]
  5. FISH OILS [Concomitant]
  6. COREG CR [Suspect]
     Indication: HYPERTENSION
     Dosage: 40MG PER DAY
     Route: 048
     Dates: start: 20100401
  7. VALTURNA [Concomitant]
  8. VITAMIN D [Concomitant]

REACTIONS (2)
  - WEIGHT INCREASED [None]
  - MUSCLE SPASMS [None]
